FAERS Safety Report 20987715 (Version 3)
Quarter: 2024Q2

REPORT INFORMATION
  Report Type: Report from Study
  Country: US (occurrence: US)
  Receive Date: 20220621
  Receipt Date: 20240608
  Transmission Date: 20240716
  Serious: Yes (Other)
  Sender: FDA-Public Use
  Company Number: US-JAZZ-2022-US-013661

PATIENT
  Sex: Female
  Weight: 31.746 kg

DRUGS (5)
  1. EPIDIOLEX [Suspect]
     Active Substance: CANNABIDIOL
     Indication: Generalised tonic-clonic seizure
     Dosage: UNK
     Dates: start: 2022
  2. EPIDIOLEX [Suspect]
     Active Substance: CANNABIDIOL
     Indication: Lennox-Gastaut syndrome
     Dosage: 1.6 MILLILITER, BID
     Dates: start: 20220418
  3. EPIDIOLEX [Suspect]
     Active Substance: CANNABIDIOL
     Dosage: 3 MILLILITER, BID, GTUBE
     Dates: start: 20210301
  4. VALPROIC ACID [Suspect]
     Active Substance: VALPROIC ACID
     Indication: Product used for unknown indication
     Dosage: 4 MILLILITER QAM
  5. VALPROIC ACID [Suspect]
     Active Substance: VALPROIC ACID
     Dosage: 7 MILLILITER QPM

REACTIONS (6)
  - Seizure [Unknown]
  - Seizure [Unknown]
  - Alopecia [Unknown]
  - Hyperhidrosis [Unknown]
  - Rash [Unknown]
  - Scoliosis [Unknown]
